FAERS Safety Report 6190383-7 (Version None)
Quarter: 2009Q2

REPORT INFORMATION
  Report Type: 
  Country: None (occurrence: None)
  Receive Date: 20090514
  Receipt Date: 20090507
  Transmission Date: 20091009
  Serious: Yes (Other)
  Sender: FDA-Public Use
  Company Number: B0569995A

PATIENT
  Age: 29 Year
  Sex: Female

DRUGS (1)
  1. CLENIL MODULITE [Suspect]
     Indication: ASTHMA
     Dosage: 400MG PER DAY
     Route: 055
     Dates: start: 20080418, end: 20080501

REACTIONS (2)
  - DYSGEUSIA [None]
  - NAUSEA [None]
